FAERS Safety Report 10188007 (Version 1)
Quarter: 2014Q2

REPORT INFORMATION
  Report Type: Spontaneous
  Country: US (occurrence: US)
  Receive Date: 20140522
  Receipt Date: 20140522
  Transmission Date: 20141212
  Serious: No
  Sender: FDA-Public Use
  Company Number: US-SA-2013SA105472

PATIENT
  Age: 46 Year
  Sex: Female

DRUGS (3)
  1. SOLOSTAR [Suspect]
     Indication: TYPE 2 DIABETES MELLITUS
  2. LANTUS SOLOSTAR [Suspect]
     Indication: TYPE 2 DIABETES MELLITUS
     Dosage: DOSE:80 UNIT(S)
     Route: 051
  3. ACYCLOVIR [Concomitant]

REACTIONS (11)
  - Eye disorder [Unknown]
  - Drug dose omission [Unknown]
  - Feeling abnormal [Unknown]
  - Pharyngeal disorder [Unknown]
  - Vision blurred [Unknown]
  - Cold sweat [Unknown]
  - Hyperhidrosis [Unknown]
  - Blood glucose increased [Unknown]
  - Blood glucose abnormal [Recovered/Resolved]
  - Stress [Recovered/Resolved]
  - Herpes zoster [Recovered/Resolved]
